FAERS Safety Report 14641955 (Version 1)
Quarter: 2018Q1

REPORT INFORMATION
  Report Type: Spontaneous
  Country: FR (occurrence: FR)
  Receive Date: 20180315
  Receipt Date: 20180315
  Transmission Date: 20180509
  Serious: Yes (Other)
  Sender: FDA-Public Use
  Company Number: FR-BAXTER-2018BAX008080

PATIENT
  Age: 16 Year
  Sex: Male

DRUGS (4)
  1. RITUXIMAB MAMMIFERE/HAMSTER/CELLULES CHO [Suspect]
     Active Substance: RITUXIMAB
     Indication: AUTOIMMUNE HAEMOLYTIC ANAEMIA
     Route: 041
     Dates: start: 20090519, end: 20090611
  2. SOLUPRED//PREDNISOLONE METASULFOBENZOATE SODIUM [Concomitant]
     Active Substance: PREDNISOLONE SODIUM METAZOATE
     Indication: AUTOIMMUNE HAEMOLYTIC ANAEMIA
     Route: 048
     Dates: start: 20090210
  3. ONCOVIN [Suspect]
     Active Substance: VINCRISTINE SULFATE
     Indication: AUTOIMMUNE HAEMOLYTIC ANAEMIA
     Route: 048
     Dates: start: 20090522, end: 20090612
  4. ENDOXAN 1000 MG, POUDRE POUR SOLUTIONINJECTABLE [Suspect]
     Active Substance: CYCLOPHOSPHAMIDE
     Indication: AUTOIMMUNE HAEMOLYTIC ANAEMIA
     Route: 041
     Dates: start: 20090522, end: 20090612

REACTIONS (1)
  - Hypogammaglobulinaemia [Recovered/Resolved with Sequelae]

NARRATIVE: CASE EVENT DATE: 20090602
